FAERS Safety Report 25160350 (Version 1)
Quarter: 2025Q2

REPORT INFORMATION
  Report Type: Spontaneous
  Country: US (occurrence: US)
  Receive Date: 20250404
  Receipt Date: 20250404
  Transmission Date: 20250716
  Serious: Yes (Other)
  Sender: APOTEX
  Company Number: US-APOTEX-2025AP004170

PATIENT
  Age: 73 Year
  Sex: Female

DRUGS (4)
  1. DEXAMETHASONE [Suspect]
     Active Substance: DEXAMETHASONE
     Indication: Immune effector cell-associated neurotoxicity syndrome
     Dosage: 20 MILLIGRAM, QID
     Route: 048
  2. DEXAMETHASONE [Suspect]
     Active Substance: DEXAMETHASONE
     Dosage: 4 MILLIGRAM, QD
     Route: 048
  3. LEVETIRACETAM [Concomitant]
     Active Substance: LEVETIRACETAM
     Indication: Seizure prophylaxis
     Dosage: 1500 MILLIGRAM, QD
     Route: 048
  4. HALOPERIDOL [Concomitant]
     Active Substance: HALOPERIDOL
     Indication: Behavioural therapy
     Dosage: 10 MILLIGRAM, TID
     Route: 042

REACTIONS (1)
  - Delirium [Recovering/Resolving]
